FAERS Safety Report 7500000-9 (Version None)
Quarter: 2011Q2

REPORT INFORMATION
  Report Type: 
  Country: None (occurrence: None)
  Receive Date: 20110524
  Receipt Date: 20110322
  Transmission Date: 20111010
  Serious: No
  Sender: FDA-Public Use
  Company Number: US-NOVEN-11US002061

PATIENT
  Sex: Male

DRUGS (3)
  1. DAYTRANA [Suspect]
     Dosage: 15 MG, UNK
     Dates: start: 20100101, end: 20110306
  2. DAYTRANA [Suspect]
     Dosage: 10 MG, UNK
     Dates: start: 20031201, end: 20100101
  3. DAYTRANA [Suspect]
     Indication: ATTENTION DEFICIT/HYPERACTIVITY DISORDER
     Dosage: 20 MG, 1X/DAY:QD
     Route: 062
     Dates: start: 20110307

REACTIONS (4)
  - PRODUCT QUALITY ISSUE [None]
  - DRUG DOSE OMISSION [None]
  - NO ADVERSE EVENT [None]
  - DRUG ADMINISTRATION ERROR [None]
